FAERS Safety Report 10577897 (Version 3)
Quarter: 2014Q4

REPORT INFORMATION
  Report Type: Spontaneous
  Country: US (occurrence: US)
  Receive Date: 20141112
  Receipt Date: 20141211
  Transmission Date: 20150529
  Serious: Yes (Other)
  Sender: FDA-Public Use
  Company Number: US-AMGEN-USASP2014025269

PATIENT
  Age: 39 Year
  Sex: Female

DRUGS (1)
  1. ENBREL [Suspect]
     Active Substance: ETANERCEPT
     Indication: RHEUMATOID ARTHRITIS
     Dosage: 50 MG, QWK
     Route: 058
     Dates: start: 19990801, end: 20140601

REACTIONS (6)
  - Induced labour [Unknown]
  - Forceps delivery [Unknown]
  - Premature rupture of membranes [Unknown]
  - Prolonged labour [Unknown]
  - Vacuum extractor delivery [Unknown]
  - Haemorrhage [Unknown]

NARRATIVE: CASE EVENT DATE: 20140901
